FAERS Safety Report 5380196-8 (Version None)
Quarter: 2007Q3

REPORT INFORMATION
  Report Type: 
  Country: None (occurrence: None)
  Receive Date: 20070706
  Receipt Date: 20070509
  Transmission Date: 20080115
  Serious: No
  Sender: FDA-Public Use
  Company Number: A0650692A

PATIENT
  Age: 50 Year
  Sex: Female

DRUGS (1)
  1. TYKERB [Suspect]
     Dosage: 5TAB PER DAY
     Route: 048

REACTIONS (3)
  - ASTHENIA [None]
  - DIARRHOEA [None]
  - RASH [None]
